FAERS Safety Report 25246037 (Version 1)
Quarter: 2025Q2

REPORT INFORMATION
  Report Type: Spontaneous
  Country: US (occurrence: None)
  Receive Date: 20250427
  Receipt Date: 20250427
  Transmission Date: 20250717
  Serious: No
  Sender: FDA-CTU
  Company Number: None

PATIENT
  Sex: Female

DRUGS (1)
  1. VERZENIO [Suspect]
     Active Substance: ABEMACICLIB
     Indication: Breast cancer female
     Dosage: 150 MG TWICE A DAY ORAL
     Route: 048
     Dates: start: 20250213

REACTIONS (3)
  - Throat tightness [None]
  - Dysphagia [None]
  - Drug hypersensitivity [None]
